FAERS Safety Report 4821134-3 (Version None)
Quarter: 2005Q4

REPORT INFORMATION
  Report Type: 
  Country: None (occurrence: None)
  Receive Date: 20051104
  Receipt Date: 20050616
  Transmission Date: 20060501
  Serious: Yes (Hospitalization, Disabling, Other)
  Sender: FDA-Public Use
  Company Number: US-MERCK-0506USA02689

PATIENT
  Age: 48 Year
  Sex: Male
  Weight: 136 kg

DRUGS (4)
  1. VIOXX [Suspect]
     Indication: ARTHRITIS
     Route: 048
     Dates: start: 20021125, end: 20031122
  2. ASPIRIN [Concomitant]
     Route: 065
     Dates: start: 20000101
  3. ECOTRIN [Concomitant]
     Route: 065
  4. NEXIUM [Concomitant]
     Route: 065

REACTIONS (15)
  - BLOOD CHOLESTEROL INCREASED [None]
  - CEREBROVASCULAR ACCIDENT [None]
  - CHEST PAIN [None]
  - DEPRESSION [None]
  - DISTURBANCE IN ATTENTION [None]
  - DYSPEPSIA [None]
  - DYSPNOEA [None]
  - HYPERTENSION [None]
  - MYOCARDIAL INFARCTION [None]
  - NEUROPATHY [None]
  - OVERDOSE [None]
  - PANIC DISORDER [None]
  - SLEEP APNOEA SYNDROME [None]
  - SLEEP DISORDER [None]
  - TRANSIENT ISCHAEMIC ATTACK [None]
